FAERS Safety Report 12287538 (Version 2)
Quarter: 2016Q2

REPORT INFORMATION
  Report Type: Report from Study
  Country: PL (occurrence: PL)
  Receive Date: 20160420
  Receipt Date: 20160421
  Transmission Date: 20160815
  Serious: Yes (Death)
  Sender: FDA-Public Use
  Company Number: PHHY2016PL052407

PATIENT
  Age: 60 Year
  Sex: Female
  Weight: 52 kg

DRUGS (1)
  1. AFINITOR [Suspect]
     Active Substance: EVEROLIMUS
     Indication: RENAL CANCER
     Dosage: 10 MG, QD
     Route: 048
     Dates: start: 20160307

REACTIONS (1)
  - Death [Fatal]

NARRATIVE: CASE EVENT DATE: 20160404
